FAERS Safety Report 7232868-8 (Version None)
Quarter: 2011Q1

REPORT INFORMATION
  Report Type: 
  Country: None (occurrence: None)
  Receive Date: 20110119
  Receipt Date: 20110105
  Transmission Date: 20110831
  Serious: Yes (Hospitalization, Other)
  Sender: FDA-Public Use
  Company Number: PHEH2008US03781

PATIENT
  Sex: Female

DRUGS (63)
  1. RADIATION THERAPY [Concomitant]
  2. KLOR-CON [Concomitant]
  3. MELATONIN [Concomitant]
  4. MACROBID [Concomitant]
     Dosage: 100 MG P.O. QHS
  5. METHADONE [Concomitant]
     Dosage: 10 MG, QHS AND PRN
  6. PROZAC [Concomitant]
  7. CYMBALTA [Concomitant]
     Dosage: 60 MG, QD
  8. XANAX [Concomitant]
  9. VIOXX [Concomitant]
     Dosage: 25 MG, QD
     Route: 048
  10. CHEMOTHERAPEUTICS,OTHER [Concomitant]
  11. LORAZEPAM [Concomitant]
     Dosage: 2 MG P.O QHS
     Route: 048
  12. QUINOLONE ANTIBACTERIALS [Concomitant]
     Indication: RESPIRATORY TRACT INFECTION
  13. SEROQUEL [Concomitant]
     Dosage: UNK
     Dates: end: 20090729
  14. OXYGEN [Concomitant]
     Indication: HYPOXIA
  15. ORAL CONTRACEPTIVE NOS [Concomitant]
  16. BACTRIM [Concomitant]
     Route: 048
  17. BIAXIN [Concomitant]
     Dosage: 250 MG, BID
     Route: 048
  18. TETRACYCLINE [Concomitant]
  19. YEAST [Concomitant]
  20. ZANTAC [Concomitant]
  21. PREDNISONE [Concomitant]
     Indication: DYSPNOEA
  22. DIFLUCAN [Concomitant]
     Indication: PYREXIA
  23. CELEXA [Concomitant]
     Indication: PSYCHOTIC DISORDER
     Dosage: 60 MG, QD
  24. DILAUDID [Concomitant]
  25. COMPAZINE [Concomitant]
     Dosage: 10 MG, PRN
  26. BLOOD AND RELATED PRODUCTS [Concomitant]
  27. ZOMETA [Suspect]
  28. COUMADIN [Concomitant]
  29. PRILOSEC [Concomitant]
  30. NEXIUM [Concomitant]
  31. OXYCODONE [Concomitant]
  32. OXYCONTIN [Concomitant]
  33. PENICILLIN ^GRUNENTHAL^ [Concomitant]
  34. CEPHALEXIN [Concomitant]
  35. REGLAN [Concomitant]
     Dosage: 10 MG P.O, QID
  36. PHAZYME [Concomitant]
     Dosage: P.O DAILY
     Route: 048
  37. GEMCITABINE [Concomitant]
     Indication: RENAL CELL CARCINOMA
  38. TEQUIN [Concomitant]
     Indication: PYREXIA
  39. NEURONTIN [Concomitant]
     Dosage: 300 MG, TID
  40. VICODIN [Concomitant]
  41. CHLORHEXIDINE GLUCONATE [Concomitant]
  42. PAXIL [Concomitant]
  43. SENNA [Concomitant]
  44. MECLOMEN [Concomitant]
  45. AVELOX [Concomitant]
     Indication: PNEUMONIA
  46. THALIDOMIDE [Concomitant]
     Indication: RENAL CELL CARCINOMA
  47. ARGATROBAN [Concomitant]
     Indication: DEEP VEIN THROMBOSIS
  48. LEXAPRO [Concomitant]
  49. MARCAINE [Concomitant]
  50. AMBIEN [Concomitant]
     Dosage: UNK
     Route: 048
  51. AREDIA [Suspect]
  52. LASIX [Concomitant]
     Indication: OEDEMA
  53. CYTOXAN [Concomitant]
     Indication: RENAL CELL CARCINOMA
  54. DOXYCYCLINE [Concomitant]
     Indication: RESPIRATORY TRACT INFECTION
  55. LOVENOX [Concomitant]
     Indication: PROPHYLAXIS
  56. RISPERDAL [Concomitant]
  57. DEPO-PROVERA [Concomitant]
  58. MAGNESIUM OXIDE [Concomitant]
  59. ORTHO-CEPT [Concomitant]
     Dosage: P.O DAILY
     Route: 048
  60. OXYCODONE HCL [Concomitant]
     Dosage: 5 MG Q. 4H
  61. CIPROFLOXACIN [Concomitant]
  62. XELODA [Concomitant]
     Indication: RENAL CELL CARCINOMA
  63. RITALIN [Concomitant]
     Dosage: 80 MG, BID

REACTIONS (56)
  - PARAESTHESIA [None]
  - MUSCULOSKELETAL PAIN [None]
  - PAIN IN EXTREMITY [None]
  - HYPOXIA [None]
  - DISCOMFORT [None]
  - INSOMNIA [None]
  - CERVICAL DYSPLASIA [None]
  - SCAR [None]
  - CELLULITIS [None]
  - DYSPNOEA [None]
  - BREATH ODOUR [None]
  - PARANOIA [None]
  - DIZZINESS [None]
  - WEIGHT DECREASED [None]
  - PAIN [None]
  - INFECTION [None]
  - NEOPLASM MALIGNANT [None]
  - OSTEOMYELITIS [None]
  - SPEECH DISORDER [None]
  - ASTHENIA [None]
  - CONSTIPATION [None]
  - PANCYTOPENIA [None]
  - IMPAIRED GASTRIC EMPTYING [None]
  - LUNG INFILTRATION [None]
  - DELIRIUM [None]
  - BONE LESION [None]
  - OESOPHAGEAL STENOSIS [None]
  - BONE DISORDER [None]
  - SEBORRHOEIC KERATOSIS [None]
  - CHRONIC SINUSITIS [None]
  - METASTASES TO BONE [None]
  - DEFORMITY [None]
  - DEEP VEIN THROMBOSIS [None]
  - AMNESIA [None]
  - ACUTE PSYCHOSIS [None]
  - CANDIDIASIS [None]
  - STOMATITIS [None]
  - OEDEMA PERIPHERAL [None]
  - VOMITING [None]
  - THROMBOCYTOPENIA [None]
  - SPINAL CORD DISORDER [None]
  - ACTINOMYCES TEST POSITIVE [None]
  - BRONCHITIS [None]
  - PNEUMONIA [None]
  - AMENORRHOEA [None]
  - OSTEONECROSIS OF JAW [None]
  - SMALL INTESTINAL OBSTRUCTION [None]
  - RESPIRATORY FAILURE [None]
  - INTERSTITIAL LUNG DISEASE [None]
  - HALLUCINATION, AUDITORY [None]
  - HYPOKALAEMIA [None]
  - HEADACHE [None]
  - URINARY TRACT INFECTION [None]
  - PYELOCALIECTASIS [None]
  - KERATITIS [None]
  - VAGINAL HAEMORRHAGE [None]
